FAERS Safety Report 25812670 (Version 1)
Quarter: 2025Q3

REPORT INFORMATION
  Report Type: 
  Country: AU (occurrence: AU)
  Receive Date: 20250917
  Receipt Date: 20250917
  Transmission Date: 20251020
  Serious: Yes (Other)
  Sender: CELLTRION
  Company Number: AU-CELLTRION INC.-2025AU032498

PATIENT

DRUGS (19)
  1. RITUXIMAB [Suspect]
     Active Substance: RITUXIMAB
     Indication: Product used for unknown indication
  2. CARBOPLATIN [Suspect]
     Active Substance: CARBOPLATIN
     Indication: Product used for unknown indication
  3. CYTARABINE [Suspect]
     Active Substance: CYTARABINE
     Indication: Product used for unknown indication
  4. DEXAMETHASONE [Suspect]
     Active Substance: DEXAMETHASONE
     Indication: Product used for unknown indication
  5. IMIPRAMINE HYDROCHLORIDE [Concomitant]
     Active Substance: IMIPRAMINE HYDROCHLORIDE
  6. PIPERACILLIN SODIUM\TAZOBACTAM SODIUM [Concomitant]
     Active Substance: PIPERACILLIN SODIUM\TAZOBACTAM SODIUM
  7. DEXAMETHASONE [Concomitant]
     Active Substance: DEXAMETHASONE
  8. ESOMEPRAZOLE [Concomitant]
     Active Substance: ESOMEPRAZOLE
  9. FLUCONAZOLE [Concomitant]
     Active Substance: FLUCONAZOLE
  10. FUROSEMIDE [Concomitant]
     Active Substance: FUROSEMIDE
  11. LIPEGFILGRASTIM [Concomitant]
     Active Substance: LIPEGFILGRASTIM
  12. LORATADINE [Concomitant]
     Active Substance: LORATADINE
  13. MAGNESIUM ASPARTATE DIHYDRATE [Concomitant]
     Active Substance: MAGNESIUM ASPARTATE DIHYDRATE
  14. METOCLOPRAMIDE [Concomitant]
     Active Substance: METOCLOPRAMIDE
  15. METRONIDAZOLE [Concomitant]
     Active Substance: METRONIDAZOLE
  16. MIRTAZAPINE [Concomitant]
     Active Substance: MIRTAZAPINE
  17. ACETAMINOPHEN [Concomitant]
     Active Substance: ACETAMINOPHEN
  18. PROMETHAZINE [Concomitant]
     Active Substance: PROMETHAZINE HYDROCHLORIDE
  19. SODIUM CHLORIDE [Concomitant]
     Active Substance: SODIUM CHLORIDE

REACTIONS (3)
  - Streptococcal endocarditis [Unknown]
  - Streptococcal sepsis [Unknown]
  - Cytokine release syndrome [Unknown]
